FAERS Safety Report 9936819 (Version 1)
Quarter: 2014Q1

REPORT INFORMATION
  Report Type: Spontaneous
  Country: US (occurrence: None)
  Receive Date: 20140110
  Receipt Date: 20140110
  Transmission Date: 20141002
  Serious: Yes (Other)
  Sender: FDA-Public Use
  Company Number: 163-22393-12121140

PATIENT
  Sex: 0

DRUGS (1)
  1. ISTODAX [Suspect]
     Indication: PRODUCT USED FOR UNKNOWN INDICATION
     Route: 042

REACTIONS (2)
  - Deep vein thrombosis [None]
  - Pulmonary embolism [None]
